FAERS Safety Report 13615754 (Version 1)
Quarter: 2017Q2

REPORT INFORMATION
  Report Type: Spontaneous
  Country: US (occurrence: US)
  Receive Date: 20170606
  Receipt Date: 20170606
  Transmission Date: 20170830
  Serious: No
  Sender: FDA-Public Use
  Company Number: US-LEXICON PHARMACEUTICALS, INC-17-1606-00128

PATIENT
  Age: 57 Year
  Sex: Female

DRUGS (11)
  1. TELOTRISTAT ETHYL [Suspect]
     Active Substance: TELOTRISTAT ETHYL
     Indication: CARCINOID SYNDROME
     Route: 048
     Dates: start: 20170406
  2. SANDOSTATIN [Concomitant]
     Active Substance: OCTREOTIDE ACETATE
  3. OXYCODONE [Concomitant]
     Active Substance: OXYCODONE
  4. TRAMADOL. [Concomitant]
     Active Substance: TRAMADOL
  5. AFINITOR [Concomitant]
     Active Substance: EVEROLIMUS
  6. PROMETHAZINE [Concomitant]
     Active Substance: PROMETHAZINE\PROMETHAZINE HYDROCHLORIDE
  7. KLOR-CON M10 [Concomitant]
     Active Substance: POTASSIUM CHLORIDE
  8. XANAX [Concomitant]
     Active Substance: ALPRAZOLAM
  9. ONDANSETRON [Concomitant]
     Active Substance: ONDANSETRON
  10. IMODIUM Q_D [Concomitant]
  11. MULTIVITAMIN/FLUORIDE [Concomitant]

REACTIONS (5)
  - Fatigue [Not Recovered/Not Resolved]
  - Drug ineffective [Unknown]
  - Nausea [Not Recovered/Not Resolved]
  - Vomiting [Not Recovered/Not Resolved]
  - Flushing [Not Recovered/Not Resolved]

NARRATIVE: CASE EVENT DATE: 201704
